FAERS Safety Report 8451970-6 (Version None)
Quarter: 2012Q2

REPORT INFORMATION
  Report Type: 
  Country: None (occurrence: None)
  Receive Date: 20120620
  Receipt Date: 20120402
  Transmission Date: 20120825
  Serious: No
  Sender: FDA-Public Use
  Company Number: US-VERTEX PHARMACEUTICALS INC.-AE-2012-004434

PATIENT
  Sex: Female
  Weight: 91.254 kg

DRUGS (5)
  1. FLOVANT [Concomitant]
     Indication: ASTHMA
  2. INCIVEK [Suspect]
     Indication: HEPATITIS C
     Route: 048
     Dates: start: 20120312
  3. RIBASPHERE [Concomitant]
     Indication: HEPATITIS C
     Route: 048
     Dates: start: 20120312
  4. VENTOLIN [Concomitant]
     Indication: ASTHMA
  5. PEGASYS [Concomitant]
     Indication: HEPATITIS C
     Dates: start: 20120312

REACTIONS (4)
  - FREQUENT BOWEL MOVEMENTS [None]
  - ORAL MUCOSAL BLISTERING [None]
  - PRURITUS [None]
  - DECREASED APPETITE [None]
